FAERS Safety Report 6094856-7 (Version None)
Quarter: 2009Q1

REPORT INFORMATION
  Report Type: 
  Country: None (occurrence: None)
  Receive Date: 20090225
  Receipt Date: 20090211
  Transmission Date: 20090719
  Serious: Yes (Hospitalization)
  Sender: FDA-Public Use
  Company Number: 231580K09USA

PATIENT
  Age: 53 Year
  Sex: Male

DRUGS (5)
  1. REBIF [Suspect]
     Indication: MULTIPLE SCLEROSIS
     Dosage: 44 MCG, 3 IN 1 WEEKS, SUBCUTANEOUS
     Route: 058
     Dates: start: 20060811
  2. ADVIL LIQUI-GELS [Concomitant]
  3. TYLENOL (COTYLENOL) [Concomitant]
  4. EXCEDRIN (MIGRAINE) [Concomitant]
  5. ALEVE (CAPLET) [Concomitant]

REACTIONS (1)
  - RESPIRATORY TRACT INFECTION [None]
